FAERS Safety Report 6844013-9 (Version None)
Quarter: 2010Q3

REPORT INFORMATION
  Report Type: 
  Country: None (occurrence: None)
  Receive Date: 20100715
  Receipt Date: 20100706
  Transmission Date: 20110219
  Serious: Yes (Hospitalization)
  Sender: FDA-Public Use
  Company Number: AT-WATSON-2010-08910

PATIENT
  Sex: Male

DRUGS (1)
  1. TRELSTAR (WATSON LABORATORIES) [Suspect]
     Indication: PROSTATE CANCER
     Dosage: 11.25 MG, (1 IN 3 MONTHS)
     Route: 058
     Dates: start: 20090101, end: 20100101

REACTIONS (1)
  - CARDIOVASCULAR DISORDER [None]
